FAERS Safety Report 25614300 (Version 2)
Quarter: 2025Q4

REPORT INFORMATION
  Report Type: Report from Study
  Country: EU (occurrence: EU)
  Receive Date: 20250728
  Receipt Date: 20251215
  Transmission Date: 20260117
  Serious: Yes (Death, Hospitalization, Other)
  Sender: ABBVIE
  Company Number: EU-ABBVIE-6389148

PATIENT
  Age: 70 Year
  Sex: Male

DRUGS (1)
  1. FOSCARBIDOPA\FOSLEVODOPA [Suspect]
     Active Substance: FOSCARBIDOPA\FOSLEVODOPA
     Indication: Parkinson^s disease
     Dosage: DOSAGE :CRL: 0.19 ML/H CR: 0.22 ML/H CRH: 0.24 ML/H ED: 0.10 ML
     Route: 058
     Dates: start: 20250306, end: 202511

REACTIONS (3)
  - Death [Fatal]
  - Speech disorder [Not Recovered/Not Resolved]
  - Lung neoplasm [Unknown]

NARRATIVE: CASE EVENT DATE: 20250101
